FAERS Safety Report 6179755-4 (Version None)
Quarter: 2009Q2

REPORT INFORMATION
  Report Type: 
  Country: None (occurrence: None)
  Receive Date: 20090505
  Receipt Date: 20090429
  Transmission Date: 20091009
  Serious: Yes (Hospitalization)
  Sender: FDA-Public Use
  Company Number: AU-BRISTOL-MYERS SQUIBB COMPANY-14606982

PATIENT
  Age: 22 Year
  Sex: Male

DRUGS (3)
  1. ETOPOSIDE [Suspect]
     Indication: MYELOID LEUKAEMIA
     Dosage: INJECTION
     Route: 042
  2. CYTARABINE [Suspect]
     Indication: MYELOID LEUKAEMIA
     Dosage: FORMULATION = INJECTION
     Route: 042
  3. MITOXANTRONE [Suspect]
     Indication: MYELOID LEUKAEMIA
     Dosage: INJECTION
     Route: 042

REACTIONS (1)
  - SUPRAVENTRICULAR TACHYCARDIA [None]
